FAERS Safety Report 13288654 (Version 1)
Quarter: 2017Q1

REPORT INFORMATION
  Report Type: Spontaneous
  Country: DE (occurrence: DE)
  Receive Date: 20170302
  Receipt Date: 20170302
  Transmission Date: 20170428
  Serious: Yes (Hospitalization, Other)
  Sender: FDA-Public Use
  Company Number: DE-ABBVIE-17K-062-1886161-00

PATIENT
  Age: 50 Year
  Sex: Female

DRUGS (5)
  1. ISONIAZID. [Concomitant]
     Active Substance: ISONIAZID
     Indication: MYCOBACTERIUM TUBERCULOSIS COMPLEX TEST POSITIVE
  2. CARBIMAZOL [Concomitant]
     Active Substance: CARBIMAZOLE
     Indication: PRODUCT USED FOR UNKNOWN INDICATION
  3. HUMIRA [Suspect]
     Active Substance: ADALIMUMAB
     Indication: CROHN^S DISEASE
     Route: 058
     Dates: start: 201511
  4. AZATHIOPRIN [Concomitant]
     Active Substance: AZATHIOPRINE
     Indication: CROHN^S DISEASE
     Dates: start: 2013, end: 2015
  5. PREDNISON [Concomitant]
     Active Substance: PREDNISONE
     Indication: CROHN^S DISEASE

REACTIONS (27)
  - Inflammatory marker increased [Recovering/Resolving]
  - Gastrointestinal inflammation [Unknown]
  - Pyrexia [Recovering/Resolving]
  - Pleural effusion [Unknown]
  - Circulatory collapse [Unknown]
  - Pericardial fibrosis [Unknown]
  - Palpitations [Not Recovered/Not Resolved]
  - Pericardial effusion [Unknown]
  - Interleukin-2 receptor increased [Unknown]
  - Pain in jaw [Not Recovered/Not Resolved]
  - Pericarditis [Not Recovered/Not Resolved]
  - Asthenia [Not Recovered/Not Resolved]
  - Chest pain [Not Recovered/Not Resolved]
  - Infection [Unknown]
  - Antinuclear antibody positive [Unknown]
  - Monoclonal gammopathy [Unknown]
  - Systemic lupus erythematosus [Unknown]
  - Respiratory disorder [Unknown]
  - Dyspnoea [Not Recovered/Not Resolved]
  - Chest pain [Recovering/Resolving]
  - Sinus tachycardia [Unknown]
  - Cardiomegaly [Unknown]
  - Atelectasis [Unknown]
  - Pain in extremity [Not Recovered/Not Resolved]
  - Goitre [Unknown]
  - Cough [Recovering/Resolving]
  - Large intestine polyp [Unknown]

NARRATIVE: CASE EVENT DATE: 201610
